FAERS Safety Report 10027955 (Version 2)
Quarter: 2014Q1

REPORT INFORMATION
  Report Type: Spontaneous
  Country: JP (occurrence: JP)
  Receive Date: 20140321
  Receipt Date: 20140321
  Transmission Date: 20141002
  Serious: Yes (Hospitalization)
  Sender: FDA-Public Use
  Company Number: JP-BAYER-2014-035689

PATIENT
  Age: 63 Year
  Sex: Male

DRUGS (2)
  1. ACETYLSALICYLIC ACID({=100 MG) [Suspect]
     Route: 048
  2. LANSOPRAZOLE [Suspect]
     Route: 048

REACTIONS (1)
  - Colitis microscopic [Recovering/Resolving]
